FAERS Safety Report 12055277 (Version 1)
Quarter: 2016Q1

REPORT INFORMATION
  Report Type: Other
  Country: US (occurrence: US)
  Receive Date: 20160209
  Receipt Date: 20160209
  Transmission Date: 20160526
  Serious: No
  Sender: FDA-Public Use
  Company Number: US-ABBVIE-15P-163-1512126-00

PATIENT
  Age: 27 Year
  Sex: Male

DRUGS (1)
  1. HUMIRA [Suspect]
     Active Substance: ADALIMUMAB
     Indication: PRODUCT USED FOR UNKNOWN INDICATION
     Route: 058

REACTIONS (7)
  - Diarrhoea [Unknown]
  - Anorectal disorder [Unknown]
  - Stress [Unknown]
  - Discomfort [Unknown]
  - Bowel movement irregularity [Unknown]
  - Constipation [Unknown]
  - Abnormal faeces [Unknown]
